FAERS Safety Report 5623486-3 (Version None)
Quarter: 2008Q1

REPORT INFORMATION
  Report Type: 
  Country: None (occurrence: None)
  Receive Date: 20080212
  Receipt Date: 20080131
  Transmission Date: 20080703
  Serious: Yes (Other)
  Sender: FDA-Public Use
  Company Number: FR-PFIZER INC-2008010595

PATIENT
  Sex: Female

DRUGS (2)
  1. CHANTIX [Suspect]
     Indication: SMOKING CESSATION THERAPY
     Dates: start: 20071113, end: 20080106
  2. ALL OTHER THERAPEUTIC PRODUCTS [Concomitant]

REACTIONS (6)
  - AGGRESSION [None]
  - BIPOLAR DISORDER [None]
  - IMPAIRED DRIVING ABILITY [None]
  - IRRITABILITY [None]
  - TINNITUS [None]
  - VERTIGO [None]
